FAERS Safety Report 7508077-1 (Version None)
Quarter: 2011Q2

REPORT INFORMATION
  Report Type: 
  Country: None (occurrence: None)
  Receive Date: 20110527
  Receipt Date: 20110517
  Transmission Date: 20111010
  Serious: No
  Sender: FDA-Public Use
  Company Number: US-BAYER-2011-012446

PATIENT
  Age: 58 Year
  Sex: Female

DRUGS (8)
  1. SOMA [Concomitant]
  2. BETASERON [Suspect]
     Dosage: 8 MIU, QOD
     Route: 058
     Dates: start: 20061016, end: 20090421
  3. MORPHINE [Concomitant]
  4. EFFEXOR XR [Concomitant]
  5. NERVOUS SYSTEM [Concomitant]
  6. BETASERON [Suspect]
     Dosage: 8 MIU, QOD
     Route: 058
     Dates: start: 20101103
  7. IBUPROFEN [Concomitant]
     Indication: PREMEDICATION
  8. BETASERON [Suspect]
     Indication: SECONDARY PROGRESSIVE MULTIPLE SCLEROSIS
     Dosage: 8 MIU, QOD
     Route: 058
     Dates: start: 20060522, end: 20060928

REACTIONS (2)
  - OROPHARYNGEAL PLAQUE [None]
  - PHARYNGEAL NEOPLASM BENIGN [None]
